FAERS Safety Report 18372996 (Version 4)
Quarter: 2022Q2

REPORT INFORMATION
  Report Type: Spontaneous
  Country: JP (occurrence: JP)
  Receive Date: 20201012
  Receipt Date: 20220413
  Transmission Date: 20220721
  Serious: Yes (Other)
  Sender: FDA-Public Use
  Company Number: JP-AMGEN-JPNSP2020164678

PATIENT

DRUGS (6)
  1. OTEZLA [Suspect]
     Active Substance: APREMILAST
     Indication: Behcet^s syndrome
     Dosage: 30 MILLIGRAM, BID
     Route: 048
  2. OTEZLA [Suspect]
     Active Substance: APREMILAST
     Indication: Behcet^s syndrome
  3. COLCHICINE [Concomitant]
     Active Substance: COLCHICINE
     Dosage: UNK UNK, QD (AVERAGE DOSE WAS 0.7 MG DAILY)
     Route: 065
  4. COLCHICINE [Concomitant]
     Active Substance: COLCHICINE
     Dosage: UNK (0.25 MG OR MORE DAILY FOR 3 MONTHS)
     Route: 065
  5. INFLIXIMAB [Concomitant]
     Active Substance: INFLIXIMAB
     Dosage: UNK
     Route: 065
  6. PREDNISOLONE [Concomitant]
     Active Substance: PREDNISOLONE
     Dosage: 0.4 MILLIGRAM, QD
     Route: 065

REACTIONS (12)
  - Retinal vein occlusion [Unknown]
  - Hallucination, auditory [Unknown]
  - Drug ineffective [Unknown]
  - Therapeutic product effect incomplete [Unknown]
  - Off label use [Unknown]
  - Mouth ulceration [Unknown]
  - Hepatic function abnormal [Unknown]
  - Interleukin level increased [Unknown]
  - Nausea [Unknown]
  - Headache [Unknown]
  - Vomiting [Unknown]
  - Diarrhoea [Unknown]
